FAERS Safety Report 4434203-7 (Version None)
Quarter: 2004Q3

REPORT INFORMATION
  Report Type: 
  Country: None (occurrence: None)
  Receive Date: 20040825
  Receipt Date: 20040817
  Transmission Date: 20050211
  Serious: Yes (Hospitalization)
  Sender: FDA-Public Use
  Company Number: EMR64300001-1

PATIENT
  Age: 66 Year
  Sex: Male

DRUGS (5)
  1. NIASPAN [Suspect]
     Indication: DYSLIPIDAEMIA
     Dosage: 1000 MG QHS PO
     Route: 048
     Dates: start: 20040730, end: 20040805
  2. NIASPAN [Suspect]
     Indication: HIGH DENSITY LIPOPROTEIN DECREASED
     Dosage: 1000 MG QHS PO
     Route: 048
     Dates: start: 20040730, end: 20040805
  3. ATENOLOL [Concomitant]
  4. ENALAPRIL [Concomitant]
  5. ALLOPURINOL [Concomitant]

REACTIONS (2)
  - TRANSIENT ISCHAEMIC ATTACK [None]
  - VERTIGO [None]
